FAERS Safety Report 9866003 (Version 1)
Quarter: 2014Q1

REPORT INFORMATION
  Report Type: Spontaneous
  Country: US (occurrence: US)
  Receive Date: 20140203
  Receipt Date: 20140203
  Transmission Date: 20141002
  Serious: No
  Sender: FDA-Public Use
  Company Number: US-ALLERGAN-1313887US

PATIENT
  Age: 90 Year
  Sex: Female

DRUGS (3)
  1. RESTASIS [Suspect]
     Indication: DRY EYE
     Dosage: 2 GTT, BID
     Route: 047
     Dates: start: 20130905, end: 20130906
  2. LATANOPROST [Concomitant]
     Indication: BORDERLINE GLAUCOMA
     Dosage: 2 GTT, QHS
     Route: 047
     Dates: start: 201303
  3. THERATEARS [Concomitant]
     Indication: DRY EYE
     Dosage: UNK
     Route: 047

REACTIONS (2)
  - Foreign body sensation in eyes [Recovering/Resolving]
  - Vision blurred [Recovering/Resolving]
